FAERS Safety Report 16144470 (Version 1)
Quarter: 2019Q2

REPORT INFORMATION
  Report Type: Spontaneous
  Country: US (occurrence: US)
  Receive Date: 20190401
  Receipt Date: 20190401
  Transmission Date: 20190711
  Serious: No
  Sender: FDA-Public Use
  Company Number: US-CELGENEUS-USA-20190308661

PATIENT
  Age: 36 Year
  Sex: Female

DRUGS (2)
  1. OTEZLA [Suspect]
     Active Substance: APREMILAST
     Indication: PSORIASIS
     Dosage: 60 MILLIGRAM
     Route: 048
     Dates: start: 20190319
  2. OTEZLA [Suspect]
     Active Substance: APREMILAST
     Dosage: STARTER PACK
     Route: 048
     Dates: start: 20190321

REACTIONS (5)
  - Migraine [Recovered/Resolved]
  - Photophobia [Recovered/Resolved]
  - Hyperacusis [Recovered/Resolved]
  - Incorrect dose administered [Unknown]
  - Tension headache [Recovered/Resolved]

NARRATIVE: CASE EVENT DATE: 20190319
